FAERS Safety Report 22232510 (Version 1)
Quarter: 2023Q2

REPORT INFORMATION
  Report Type: Spontaneous
  Country: US (occurrence: None)
  Receive Date: 20230420
  Receipt Date: 20230420
  Transmission Date: 20230721
  Serious: No
  Sender: FDA-Public Use
  Company Number: US-ROCHE-3042730

PATIENT
  Sex: Female

DRUGS (7)
  1. ESBRIET [Suspect]
     Active Substance: PIRFENIDONE
     Indication: Spinal pain
     Dosage: 3 TABLETS THREE TIME A DAY WITH MEAL
     Route: 048
  2. IBUPROFEN [Concomitant]
     Active Substance: IBUPROFEN
  3. PANTOPRAZOLE [Concomitant]
     Active Substance: PANTOPRAZOLE
  4. RITALIN [Concomitant]
     Active Substance: METHYLPHENIDATE HYDROCHLORIDE
  5. TYLENOL [Concomitant]
     Active Substance: ACETAMINOPHEN
  6. ATENOLOL [Concomitant]
     Active Substance: ATENOLOL
  7. LAMICTAL XR [Concomitant]
     Active Substance: LAMOTRIGINE

REACTIONS (3)
  - Drug intolerance [Unknown]
  - Incorrect dose administered [Unknown]
  - Off label use [Unknown]
